FAERS Safety Report 24590113 (Version 1)
Quarter: 2024Q4

REPORT INFORMATION
  Report Type: Spontaneous
  Country: RE (occurrence: RE)
  Receive Date: 20241107
  Receipt Date: 20241107
  Transmission Date: 20250114
  Serious: Yes (Other)
  Sender: SANDOZ
  Company Number: RE-MLMSERVICE-20161011-0452889-1

PATIENT
  Age: 6 Year
  Sex: Female

DRUGS (1)
  1. MYCOPHENOLATE MOFETIL [Suspect]
     Active Substance: MYCOPHENOLATE MOFETIL
     Indication: Nephrotic syndrome
     Dosage: 600 MG/M2, BID
     Route: 065

REACTIONS (5)
  - Bronchiectasis [Recovering/Resolving]
  - Hypogammaglobulinaemia [Unknown]
  - Neutropenia [Unknown]
  - Haemophilus infection [Unknown]
  - Product use in unapproved indication [Unknown]
